FAERS Safety Report 17814750 (Version 1)
Quarter: 2020Q2

REPORT INFORMATION
  Report Type: Spontaneous
  Country: US (occurrence: US)
  Receive Date: 20200522
  Receipt Date: 20200522
  Transmission Date: 20200714
  Serious: Yes (Other)
  Sender: FDA-Public Use
  Company Number: US-TEVA-2020-US-1238431

PATIENT
  Age: 70 Year
  Sex: Female
  Weight: 54.5 kg

DRUGS (2)
  1. PROVIGIL [Suspect]
     Active Substance: MODAFINIL
     Indication: POOR QUALITY SLEEP
     Route: 065
     Dates: start: 2017
  2. SOMA [Concomitant]
     Active Substance: CARISOPRODOL

REACTIONS (7)
  - Bone erosion [Unknown]
  - Gait inability [Not Recovered/Not Resolved]
  - Near death experience [Unknown]
  - Pigmentation disorder [Not Recovered/Not Resolved]
  - Pain [Not Recovered/Not Resolved]
  - Oedema blister [Recovered/Resolved]
  - Amnesia [Not Recovered/Not Resolved]

NARRATIVE: CASE EVENT DATE: 202003
